FAERS Safety Report 7743002-X (Version None)
Quarter: 2011Q3

REPORT INFORMATION
  Report Type: 
  Country: None (occurrence: None)
  Receive Date: 20110912
  Receipt Date: 20110901
  Transmission Date: 20111222
  Serious: Yes (Hospitalization, Other)
  Sender: FDA-Public Use
  Company Number: JP-ROCHE-777607

PATIENT
  Sex: Female
  Weight: 52 kg

DRUGS (22)
  1. ALFAROL [Concomitant]
     Route: 048
     Dates: start: 20090424
  2. LOXONIN [Concomitant]
     Route: 048
     Dates: start: 20090909
  3. RISEDRONATE SODIUM [Concomitant]
     Route: 048
     Dates: start: 20090424
  4. AZULFIDINE [Concomitant]
     Route: 048
  5. PREDNISOLONE [Suspect]
     Route: 048
     Dates: start: 20110331, end: 20110404
  6. SOLU-MEDROL [Suspect]
     Indication: PNEUMONIA PNEUMOCOCCAL
     Dosage: START DATE AND END DATE: 29 MARCH 2011
     Route: 042
  7. SOLU-MEDROL [Suspect]
     Dosage: START DATE AND END DATE: 31 MARCH 2011
     Route: 042
  8. JUVELA [Concomitant]
     Dosage: FORM: PERORAL AGENT
     Route: 048
  9. SOLU-MEDROL [Suspect]
     Dosage: START DATE AND END DATE: 30 MARCH 2011
     Route: 042
  10. OLMESARTAN MEDOXOMIL [Concomitant]
     Route: 048
     Dates: start: 20101006
  11. PREDNISOLONE [Suspect]
     Route: 048
     Dates: start: 20110101
  12. TOCILIZUMAB [Suspect]
     Indication: RHEUMATOID ARTHRITIS
     Route: 041
     Dates: start: 20101013
  13. TOCILIZUMAB [Suspect]
     Route: 041
     Dates: end: 20110316
  14. PREDNISOLONE [Suspect]
     Indication: RHEUMATOID ARTHRITIS
     Route: 048
     Dates: start: 20101006
  15. PREDNISOLONE [Suspect]
     Route: 048
     Dates: start: 20110405, end: 20110412
  16. PREDNISOLONE [Suspect]
     Route: 048
     Dates: start: 20110101
  17. RIMATIL [Concomitant]
     Route: 048
  18. BREDININ [Concomitant]
     Route: 048
  19. LANSOPRAZOLE [Concomitant]
     Dosage: FORM: PERORAL AGENT
     Route: 048
  20. ANPLAG [Concomitant]
     Dosage: FORM: PERORAL AGENT
     Route: 048
  21. TOCILIZUMAB [Suspect]
     Route: 041
     Dates: start: 20101027, end: 20101124
  22. TOCILIZUMAB [Suspect]
     Route: 041
     Dates: start: 20101222

REACTIONS (4)
  - SKIN ULCER [None]
  - PNEUMONIA PNEUMOCOCCAL [None]
  - PLEURISY [None]
  - LOSS OF CONSCIOUSNESS [None]
